FAERS Safety Report 13596872 (Version 2)
Quarter: 2017Q3

REPORT INFORMATION
  Report Type: Report from Study
  Country: US (occurrence: US)
  Receive Date: 20170531
  Receipt Date: 20170717
  Transmission Date: 20171127
  Serious: Yes (Life-Threatening, Hospitalization)
  Sender: FDA-Public Use
  Company Number: US-JNJFOC-20170520547

PATIENT
  Age: 35 Year
  Sex: Female
  Weight: 91.5 kg

DRUGS (3)
  1. APAP [Suspect]
     Active Substance: ACETAMINOPHEN
     Route: 048
  2. APAP [Suspect]
     Active Substance: ACETAMINOPHEN
     Indication: ARTHRITIS
     Dosage: 10-12 TABLETS AT A TIME
     Route: 048
     Dates: start: 201705, end: 201705
  3. PARACETAMOL/DEXTROMETHORPHAN/PHENYLEPHRINE [Suspect]
     Active Substance: ACETAMINOPHEN\DEXTROMETHORPHAN\PHENYLEPHRINE
     Indication: RESPIRATORY TRACT INFECTION VIRAL
     Dosage: OVER A FEW HOURS
     Route: 048
     Dates: start: 201705

REACTIONS (6)
  - Hypoglycaemia [Recovered/Resolved]
  - Acute hepatic failure [Recovered/Resolved]
  - Metabolic acidosis [Recovered/Resolved]
  - Overdose [Recovered/Resolved]
  - Septic shock [Recovered/Resolved]
  - Dehydration [Recovered/Resolved]

NARRATIVE: CASE EVENT DATE: 201705
